FAERS Safety Report 21436541 (Version 2)
Quarter: 2023Q2

REPORT INFORMATION
  Report Type: Spontaneous
  Country: JP (occurrence: None)
  Receive Date: 20221010
  Receipt Date: 20230511
  Transmission Date: 20230722
  Serious: Yes (Death, Hospitalization, Other)
  Sender: FDA-Public Use
  Company Number: 2022A341144

PATIENT
  Age: 91 Year
  Sex: Male

DRUGS (1)
  1. ONDEXXYA [Suspect]
     Active Substance: ANDEXANET ALFA
     Indication: Subarachnoid haemorrhage
     Dosage: SEE NARRATIVE
     Route: 042

REACTIONS (4)
  - SARS-CoV-2 test positive [Unknown]
  - Death [Fatal]
  - Peripheral arterial occlusive disease [Unknown]
  - Necrosis of artery [Unknown]
